FAERS Safety Report 4463843-4 (Version None)
Quarter: 2004Q3

REPORT INFORMATION
  Report Type: 
  Country: None (occurrence: None)
  Receive Date: 20040929
  Receipt Date: 20040917
  Transmission Date: 20050211
  Serious: Yes (Hospitalization)
  Sender: FDA-Public Use
  Company Number: 2003SE00666

PATIENT
  Age: 64 Year
  Sex: Female
  Weight: 55 kg

DRUGS (8)
  1. CANDESARTAN TAKEDA [Suspect]
     Indication: HYPERTENSION
     Dates: start: 20020501, end: 20030119
  2. PROGRAF [Suspect]
     Indication: PROPHYLAXIS AGAINST TRANSPLANT REJECTION
     Dates: start: 20020501, end: 20030119
  3. PROFENID [Suspect]
     Indication: BACK PAIN
     Dates: start: 20030101
  4. CELLCEPT [Concomitant]
  5. CORTANCYL [Concomitant]
  6. FUMAFER [Concomitant]
  7. CACIT D3 [Concomitant]
  8. RIMIFON [Concomitant]

REACTIONS (4)
  - ANAEMIA [None]
  - DRUG TOXICITY [None]
  - PYREXIA [None]
  - RENAL FAILURE ACUTE [None]
